FAERS Safety Report 7149109-2 (Version None)
Quarter: 2010Q4

REPORT INFORMATION
  Report Type: 
  Country: None (occurrence: None)
  Receive Date: 20101209
  Receipt Date: 20091109
  Transmission Date: 20110411
  Serious: Yes (Other)
  Sender: FDA-Public Use
  Company Number: JP-MERCK-0911USA02355

PATIENT
  Age: 64 Year
  Sex: Female

DRUGS (5)
  1. FOSAMAX [Suspect]
     Route: 048
     Dates: start: 20080813, end: 20081101
  2. ANPLAG [Concomitant]
     Route: 048
     Dates: start: 20080201
  3. AMOBAN [Concomitant]
     Route: 048
     Dates: start: 20080201
  4. PARIET [Concomitant]
     Route: 048
     Dates: start: 20080201
  5. ASPIRIN [Concomitant]
     Route: 048
     Dates: start: 20080201

REACTIONS (1)
  - OSTEOMYELITIS [None]
